FAERS Safety Report 15172299 (Version 1)
Quarter: 2018Q4

REPORT INFORMATION
  Report Type: Spontaneous
  Country: US (occurrence: US)
  Receive Date: 20180720
  Receipt Date: 20180720
  Transmission Date: 20190204
  Serious: No
  Sender: FDA-Public Use
  Company Number: US-BAYER-2018-135124

PATIENT
  Age: 77 Year
  Sex: Male
  Weight: 81.63 kg

DRUGS (5)
  1. YEAST [Suspect]
     Active Substance: YEAST
  2. LISINOPRIL. [Concomitant]
     Active Substance: LISINOPRIL
  3. ALEVE [Suspect]
     Active Substance: NAPROXEN SODIUM
     Dosage: 2 TWICE DAILY FOR 2 WEEKS
     Route: 048
  4. FISH OIL [Concomitant]
     Active Substance: FISH OIL
  5. GLUCOSAMINA [Concomitant]

REACTIONS (2)
  - Product use issue [Unknown]
  - Product prescribing issue [Unknown]
